FAERS Safety Report 4464931-9 (Version None)
Quarter: 2004Q4

REPORT INFORMATION
  Report Type: 
  Country: None (occurrence: None)
  Receive Date: 20041004
  Receipt Date: 20040311
  Transmission Date: 20050328
  Serious: No
  Sender: FDA-Public Use
  Company Number: 364933

PATIENT

DRUGS (1)
  1. COREG [Suspect]
     Indication: HYPERTENSION
     Dosage: 3.125MG UNKNOWN
     Route: 048

REACTIONS (2)
  - BLOOD PRESSURE INCREASED [None]
  - DRUG INEFFECTIVE [None]
